FAERS Safety Report 7063284-X (Version None)
Quarter: 2010Q4

REPORT INFORMATION
  Report Type: 
  Country: None (occurrence: None)
  Receive Date: 20101026
  Receipt Date: 20100701
  Transmission Date: 20110411
  Serious: No
  Sender: FDA-Public Use
  Company Number: US-PFIZER INC-2010093916

PATIENT
  Age: 66 Year
  Sex: Male
  Weight: 74.83 kg

DRUGS (2)
  1. LIPITOR [Suspect]
     Indication: HYPERTENSION
     Dosage: 10 MG, UNK
  2. CENTRUM SILVER [Suspect]
     Indication: MEDICAL DIET
     Dosage: 1 CHEWABLE DAILY
     Route: 048

REACTIONS (1)
  - MUSCULOSKELETAL STIFFNESS [None]
